FAERS Safety Report 16688547 (Version 1)
Quarter: 2019Q4

REPORT INFORMATION
  Report Type: Spontaneous
  Country: US (occurrence: US)
  Receive Date: 20190809
  Receipt Date: 20190809
  Transmission Date: 20200122
  Serious: No
  Sender: FDA-Public Use
  Company Number: None

PATIENT
  Age: 38 Year
  Sex: Female
  Weight: 124.2 kg

DRUGS (1)
  1. FARXIGA [Suspect]
     Active Substance: DAPAGLIFLOZIN PROPANEDIOL
     Indication: DIABETES MELLITUS
     Dosage: ?          QUANTITY:7 TABLET(S);?
     Route: 048
     Dates: start: 20190415, end: 20190701

REACTIONS (9)
  - Vulvovaginal discomfort [None]
  - Vulvovaginal burning sensation [None]
  - Skin irritation [None]
  - Vulvovaginal pruritus [None]
  - Blister [None]
  - Skin mass [None]
  - Skin haemorrhage [None]
  - Pain [None]
  - Fungal infection [None]

NARRATIVE: CASE EVENT DATE: 20190808
